FAERS Safety Report 10913723 (Version 2)
Quarter: 2015Q1

REPORT INFORMATION
  Report Type: Spontaneous
  Country: US (occurrence: US)
  Receive Date: 20150313
  Receipt Date: 20150313
  Transmission Date: 20150721
  Serious: No
  Sender: FDA-Public Use
  Company Number: US-TEVA-546804USA

PATIENT
  Sex: Female

DRUGS (1)
  1. NUVIGIL [Suspect]
     Active Substance: ARMODAFINIL
     Dates: start: 20150306, end: 201503

REACTIONS (5)
  - Incorrect dose administered [Unknown]
  - Drug effect increased [Unknown]
  - Poor quality sleep [Unknown]
  - Muscle spasms [Not Recovered/Not Resolved]
  - Insomnia [Not Recovered/Not Resolved]

NARRATIVE: CASE EVENT DATE: 201503
